FAERS Safety Report 16843068 (Version 1)
Quarter: 2019Q3

REPORT INFORMATION
  Report Type: Spontaneous
  Country: US (occurrence: US)
  Receive Date: 20190924
  Receipt Date: 20190924
  Transmission Date: 20191005
  Serious: No
  Sender: FDA-Public Use
  Company Number: US-ALLERGAN-1930999US

PATIENT
  Age: 75 Year
  Sex: Female
  Weight: 82.54 kg

DRUGS (1)
  1. ESCITALOPRAM OXALATE UNK [Suspect]
     Active Substance: ESCITALOPRAM OXALATE
     Indication: DEPRESSION
     Dosage: 20 MG, QD
     Route: 048

REACTIONS (6)
  - Growth retardation [Not Recovered/Not Resolved]
  - Headache [Unknown]
  - Disturbance in attention [Unknown]
  - Feeling abnormal [Unknown]
  - Apathy [Unknown]
  - Dizziness [Unknown]
